FAERS Safety Report 4392737-8 (Version None)
Quarter: 2004Q3

REPORT INFORMATION
  Report Type: 
  Country: None (occurrence: None)
  Receive Date: 20040706
  Receipt Date: 20040621
  Transmission Date: 20050211
  Serious: Yes (Disabling)
  Sender: FDA-Public Use
  Company Number: 2004GB01004

PATIENT
  Age: 43 Year
  Sex: Male

DRUGS (5)
  1. CRESTOR [Suspect]
     Indication: HYPERCHOLESTEROLAEMIA
     Dosage: 10 MG PO
     Route: 048
     Dates: start: 20030818
  2. INSULIN GLARGINE [Concomitant]
  3. CETIRIZINE HCL [Concomitant]
  4. RAMIPRIL [Concomitant]
  5. NOVORAPID [Concomitant]

REACTIONS (16)
  - BLOOD CREATINE PHOSPHOKINASE INCREASED [None]
  - BLOOD VISCOSITY INCREASED [None]
  - EOSINOPHILIA [None]
  - FATIGUE [None]
  - FULL BLOOD COUNT INCREASED [None]
  - HYPOAESTHESIA [None]
  - INFLAMMATION [None]
  - LETHARGY [None]
  - MALAISE [None]
  - MYALGIA [None]
  - OEDEMA PERIPHERAL [None]
  - PAIN [None]
  - PAIN IN EXTREMITY [None]
  - PYREXIA [None]
  - THROMBOCYTHAEMIA [None]
  - WEIGHT DECREASED [None]
